FAERS Safety Report 15557611 (Version 1)
Quarter: 2018Q4

REPORT INFORMATION
  Report Type: Spontaneous
  Country: US (occurrence: US)
  Receive Date: 20181027
  Receipt Date: 20181027
  Transmission Date: 20190205
  Serious: No
  Sender: FDA-Public Use
  Company Number: US-HORIZON-DUE-0233-2018

PATIENT
  Age: 60 Year
  Sex: Female

DRUGS (7)
  1. ROBAXIN [Concomitant]
     Active Substance: METHOCARBAMOL
  2. GABAPENTIN. [Concomitant]
     Active Substance: GABAPENTIN
  3. ESTRADIOL. [Concomitant]
     Active Substance: ESTRADIOL
  4. NORCO [Concomitant]
     Active Substance: ACETAMINOPHEN\HYDROCODONE BITARTRATE
  5. DUEXIS [Suspect]
     Active Substance: FAMOTIDINE\IBUPROFEN
     Indication: INFLAMMATION
     Dosage: 1 TABLET TID
     Dates: start: 20180515, end: 20180529
  6. VENLAFAXINE [Concomitant]
     Active Substance: VENLAFAXINE HYDROCHLORIDE
  7. METHAZOLAMIDE. [Concomitant]
     Active Substance: METHAZOLAMIDE

REACTIONS (2)
  - Abdominal pain upper [Recovered/Resolved]
  - Abdominal distension [Recovered/Resolved]

NARRATIVE: CASE EVENT DATE: 20180518
